FAERS Safety Report 4799855-0 (Version None)
Quarter: 2005Q4

REPORT INFORMATION
  Report Type: 
  Country: None (occurrence: None)
  Receive Date: 20051012
  Receipt Date: 20051012
  Transmission Date: 20060501
  Serious: Yes (Life-Threatening, Hospitalization)
  Sender: FDA-Public Use
  Company Number: None

PATIENT
  Age: 45 Year
  Sex: Female
  Weight: 113.3993 kg

DRUGS (3)
  1. ANDRODERM [Suspect]
     Indication: ACCIDENTAL EXPOSURE
  2. ANDROGEL [Suspect]
     Indication: ACCIDENTAL EXPOSURE
  3. SYNTHROID [Concomitant]

REACTIONS (19)
  - ACCIDENTAL EXPOSURE [None]
  - AGGRESSION [None]
  - AGITATION [None]
  - ANGER [None]
  - BLINDNESS UNILATERAL [None]
  - EYE SWELLING [None]
  - HAIR GROWTH ABNORMAL [None]
  - HEADACHE [None]
  - MOVEMENT DISORDER [None]
  - MUSCULOSKELETAL STIFFNESS [None]
  - OEDEMA MOUTH [None]
  - OEDEMA PERIPHERAL [None]
  - PANCREATITIS [None]
  - RASH [None]
  - RENAL DISORDER [None]
  - RETINAL HAEMORRHAGE [None]
  - SKIN INFLAMMATION [None]
  - VASCULITIS [None]
  - VISUAL DISTURBANCE [None]
